FAERS Safety Report 7451310-5 (Version None)
Quarter: 2011Q2

REPORT INFORMATION
  Report Type: 
  Country: None (occurrence: None)
  Receive Date: 20110502
  Receipt Date: 20110328
  Transmission Date: 20111010
  Serious: Yes (Hospitalization, Other)
  Sender: FDA-Public Use
  Company Number: US-BAYER-200942777NA

PATIENT
  Age: 24 Year
  Sex: Female
  Weight: 79 kg

DRUGS (8)
  1. YASMIN [Suspect]
     Indication: CONTRACEPTION
     Dosage: 1 DF (DAILY DOSE), QD, ORAL
     Route: 048
     Dates: start: 20080101, end: 20090615
  2. YAZ [Suspect]
     Indication: CONTRACEPTION
     Dosage: 1 DF (DAILY DOSE), QD, ORAL
     Route: 048
     Dates: start: 20080101, end: 20090615
  3. OCELLA [Suspect]
     Indication: CONTRACEPTION
     Dosage: UNK
     Dates: start: 20080101, end: 20090101
  4. ANTIBIOTICS [Concomitant]
  5. HYDROCHLOROTHIAZDE TAB [Concomitant]
     Indication: HYPERTENSION
     Dosage: DAILY DOSE 25 MG
     Dates: start: 20070101
  6. FLINTSTONES [Concomitant]
     Dosage: UNK UNK, QD
  7. CALCIUM [Concomitant]
     Dosage: UNK UNK, ONCE
  8. NAPROXEN [Concomitant]

REACTIONS (6)
  - BILIARY COLIC [None]
  - CHOLELITHIASIS [None]
  - CHOLECYSTITIS [None]
  - ABDOMINAL PAIN UPPER [None]
  - MULTIPLE INJURIES [None]
  - HYPERKALAEMIA [None]
